FAERS Safety Report 15881000 (Version 7)
Quarter: 2025Q4

REPORT INFORMATION
  Report Type: Other
  Country: EU (occurrence: EU)
  Receive Date: 20190128
  Receipt Date: 20251010
  Transmission Date: 20260118
  Serious: Yes (Hospitalization, Other)
  Sender: BIOCON
  Company Number: EU-NOVPHSZ-PHHY2018GR042310

PATIENT

DRUGS (20)
  1. ADALIMUMAB [Suspect]
     Active Substance: ADALIMUMAB
     Indication: Ankylosing spondylitis
     Dosage: UNK
     Route: 065
  2. ADALIMUMAB [Suspect]
     Active Substance: ADALIMUMAB
  3. ADALIMUMAB [Suspect]
     Active Substance: ADALIMUMAB
  4. ADALIMUMAB [Suspect]
     Active Substance: ADALIMUMAB
  5. ADALIMUMAB [Suspect]
     Active Substance: ADALIMUMAB
  6. ALPRAZOLAM [Suspect]
     Active Substance: ALPRAZOLAM
     Indication: Depression
     Dosage: UNK
     Route: 065
  7. PREDNISOLONE [Suspect]
     Active Substance: PREDNISOLONE
     Indication: Ankylosing spondylitis
     Dosage: 10 MG, QD
     Route: 065
  8. PREDNISOLONE [Suspect]
     Active Substance: PREDNISOLONE
     Indication: Arthralgia
     Dosage: 7.5 MILLIGRAM, QD
     Route: 065
  9. CITALOPRAM [Suspect]
     Active Substance: CITALOPRAM
     Indication: Depression
     Dosage: UNK
     Route: 065
  10. METHOTREXATE [Suspect]
     Active Substance: METHOTREXATE
     Indication: Product used for unknown indication
     Dosage: 15 MILLIGRAM, QW
     Route: 065
  11. CAPTOPRIL [Suspect]
     Active Substance: CAPTOPRIL
     Indication: Hypertension
     Dosage: UNK
     Route: 065
  12. CAPTOPRIL [Suspect]
     Active Substance: CAPTOPRIL
     Indication: Depression
  13. ETANERCEPT [Suspect]
     Active Substance: ETANERCEPT
     Indication: Ankylosing spondylitis
     Dosage: UNK
     Route: 065
  14. ETANERCEPT [Suspect]
     Active Substance: ETANERCEPT
     Indication: Psoriasis
  15. FOLIC ACID [Suspect]
     Active Substance: FOLIC ACID
     Indication: Arthralgia
     Dosage: 5 MILLIGRAM, QW
     Route: 065
  16. FOLATE SODIUM [Suspect]
     Active Substance: FOLATE SODIUM
     Indication: Product used for unknown indication
     Dosage: 5 MILLIGRAM, QW
     Route: 065
  17. HYDROXYCHLOROQUINE [Suspect]
     Active Substance: HYDROXYCHLOROQUINE
     Indication: Ankylosing spondylitis
     Dosage: 200 MILLIGRAM, QD
     Route: 065
  18. HYDROXYCHLOROQUINE [Suspect]
     Active Substance: HYDROXYCHLOROQUINE
     Indication: Arthralgia
     Dosage: UNK
     Route: 065
  19. FOLATE SODIUM [Suspect]
     Active Substance: FOLATE SODIUM
     Indication: Arthralgia
     Dosage: 5 MILLIGRAM, QW
     Route: 065
  20. VALSARTAN [Concomitant]
     Active Substance: VALSARTAN
     Indication: Ankylosing spondylitis
     Dosage: UNK
     Route: 065

REACTIONS (15)
  - Raynaud^s phenomenon [Unknown]
  - Scleroedema [Unknown]
  - Scleroderma renal crisis [Unknown]
  - Microangiopathic haemolytic anaemia [Unknown]
  - Orthopnoea [Unknown]
  - Blood pressure increased [Recovered/Resolved]
  - Renal impairment [Unknown]
  - Arthralgia [Unknown]
  - Dyspnoea [Unknown]
  - Weight decreased [Unknown]
  - Leukopenia [Unknown]
  - Thrombocytopenia [Unknown]
  - Drug ineffective [Unknown]
  - Product use in unapproved indication [Unknown]
  - Therapy non-responder [Unknown]
